FAERS Safety Report 10183821 (Version 2)
Quarter: 2014Q2

REPORT INFORMATION
  Report Type: Spontaneous
  Country: CN (occurrence: CN)
  Receive Date: 20140520
  Receipt Date: 20140520
  Transmission Date: 20141212
  Serious: Yes (Other)
  Sender: FDA-Public Use
  Company Number: PHHY2013CN046688

PATIENT
  Age: 31 Year
  Sex: Female

DRUGS (5)
  1. SANDOSTATIN LAR [Suspect]
     Indication: NEUROENDOCRINE TUMOUR
     Dosage: 40 MG, ONCE PER 28 DAYS
     Route: 030
     Dates: start: 20130101, end: 20130522
  2. ESTAZOLAM [Concomitant]
  3. DIAZEPAM [Concomitant]
     Dosage: UNK UKN, UNK
  4. MORPHINE [Concomitant]
     Dosage: UNK UKN, UNK
  5. CARBAMAZEPINE [Concomitant]
     Indication: CONVULSION
     Dosage: UNK

REACTIONS (11)
  - Dysaesthesia [Unknown]
  - Tic [Unknown]
  - Pollakiuria [Unknown]
  - Amenorrhoea [Unknown]
  - Convulsion [Unknown]
  - Malignant neoplasm progression [Unknown]
  - Metastasis [Unknown]
  - Hypoaesthesia [Unknown]
  - Fatigue [Unknown]
  - Hypoaesthesia oral [Unknown]
  - Bedridden [Unknown]
